FAERS Safety Report 4629931-4 (Version None)
Quarter: 2005Q2

REPORT INFORMATION
  Report Type: 
  Country: None (occurrence: None)
  Receive Date: 20050408
  Receipt Date: 20050330
  Transmission Date: 20051028
  Serious: Yes (Hospitalization)
  Sender: FDA-Public Use
  Company Number: JP-JNJFOC-20050300931

PATIENT
  Sex: Male

DRUGS (8)
  1. ITRIZOLE [Suspect]
     Route: 049
  2. ITRIZOLE [Suspect]
     Route: 049
  3. ITRIZOLE [Suspect]
     Indication: ONYCHOMYCOSIS
     Route: 049
  4. CARBIDOPA AND LEVODOPA [Concomitant]
     Route: 049
     Dates: start: 20030904
  5. CARBIDOPA AND LEVODOPA [Concomitant]
     Indication: PARKINSON'S DISEASE
     Route: 049
     Dates: start: 20030904
  6. CABERGOLINE [Concomitant]
     Indication: PARKINSON'S DISEASE
     Route: 049
     Dates: start: 20031009
  7. AMOROLFINE HYDROCHLORIDE [Concomitant]
     Indication: NAIL TINEA
     Route: 061
     Dates: start: 20040722
  8. RILMAZAFONE HYDROCHLORIDE [Concomitant]
     Indication: PARKINSON'S DISEASE
     Route: 049
     Dates: start: 20040909

REACTIONS (1)
  - FEMORAL NECK FRACTURE [None]
